FAERS Safety Report 7679748 (Version 3)
Quarter: 2012Q4

REPORT INFORMATION
  Report Type: 
  Country: US (occurrence: US)
  Receive Date: 20101123
  Receipt Date: 20121011
  Transmission Date: 20130627
  Serious: Yes (Hospitalization)
  Sender: FDA-Public Use
  Company Number: US-BAYER-201041967NA

PATIENT
  Age: 35 Year
  Sex: Female
  Weight: 69.84 kg

DRUGS (8)
  1. YAZ [Suspect]
     Indication: MENSTRUAL CYCLE MANAGEMENT
     Dosage: UNK UNK, UNK
     Route: 048
     Dates: start: 200811, end: 200901
  2. YAZ [Suspect]
     Indication: ORAL CONTRACEPTION
  3. YAZ [Suspect]
     Indication: HORMONE REPLACEMENT THERAPY
  4. FLUOXETINE [Concomitant]
     Indication: DEPRESSION
     Dosage: 10 mg, QD
     Route: 048
     Dates: start: 2008, end: 2010
  5. FLUOXETINE [Concomitant]
     Indication: MOOD SWINGS
  6. VICODIN [Concomitant]
  7. ANCEF [Concomitant]
     Dosage: UNK
     Route: 042
     Dates: start: 20090120
  8. PROZAC [Concomitant]

REACTIONS (4)
  - Deep vein thrombosis [Recovered/Resolved]
  - Pain in extremity [Recovered/Resolved]
  - Oedema peripheral [Recovered/Resolved]
  - Fear of disease [None]
